FAERS Safety Report 9187615 (Version 2)
Quarter: 2013Q2

REPORT INFORMATION
  Report Type: Spontaneous
  Country: US (occurrence: US)
  Receive Date: 20130325
  Receipt Date: 20130513
  Transmission Date: 20140414
  Serious: No
  Sender: FDA-Public Use
  Company Number: US-PFIZER INC-2013095063

PATIENT
  Sex: Male

DRUGS (1)
  1. ADVIL PM [Suspect]
     Indication: SLEEP DISORDER
     Dosage: 400/76 MG, ONCE
     Dates: start: 20130320, end: 20130320

REACTIONS (1)
  - Drug ineffective [Unknown]
